FAERS Safety Report 4283734-1 (Version None)
Quarter: 2004Q1

REPORT INFORMATION
  Report Type: 
  Country: None (occurrence: None)
  Receive Date: 20040202
  Receipt Date: 20040126
  Transmission Date: 20041129
  Serious: Yes (Hospitalization, Disabling, Other)
  Sender: FDA-Public Use
  Company Number: WAES 0401GBR00222

PATIENT
  Age: 69 Year
  Sex: Male
  Weight: 60 kg

DRUGS (12)
  1. ACETAMINOPHEN AND CODEINE PHOSPHATE [Concomitant]
     Dates: end: 20030501
  2. ACETAMINOPHEN AND CODEINE PHOSPHATE [Concomitant]
     Dates: start: 20010704
  3. FUROSEMIDE [Concomitant]
     Dates: start: 20001208
  4. ISOSORBIDE MONONITRATE [Concomitant]
     Dates: start: 20021129
  5. LANSOPRAZOLE [Concomitant]
     Dates: start: 20020823
  6. NICORANDIL [Concomitant]
     Dates: start: 19981104
  7. NITROGLYCERIN [Concomitant]
     Dates: start: 20020919
  8. OMEGA-3 MARINE TRIGLYCERIDES [Concomitant]
     Dates: start: 20021129
  9. POTASSIUM BICARBONATE AND SODIUM ALGINATE [Concomitant]
     Dates: start: 20000126
  10. RAMIPRIL [Concomitant]
     Dates: start: 20010808
  11. ZOCOR [Suspect]
     Indication: MYOCARDIAL INFARCTION
     Route: 048
     Dates: start: 20020823
  12. SPIRONOLACTONE [Concomitant]
     Dates: start: 20020410

REACTIONS (1)
  - ANAL FISSURE [None]
